FAERS Safety Report 12876339 (Version 1)
Quarter: 2016Q4

REPORT INFORMATION
  Report Type: Spontaneous
  Country: US (occurrence: US)
  Receive Date: 20161021
  Receipt Date: 20161021
  Transmission Date: 20170207
  Serious: Yes (Hospitalization)
  Sender: FDA-Public Use
  Company Number: None

PATIENT
  Age: 52 Year
  Sex: Female
  Weight: 76.5 kg

DRUGS (6)
  1. LAMICTAL XR [Concomitant]
     Active Substance: LAMOTRIGINE
  2. AMIODARONE [Suspect]
     Active Substance: AMIODARONE
     Indication: ARRHYTHMIA PROPHYLAXIS
     Dosage: ?          QUANTITY:30 TABLET(S);?
     Route: 048
  3. EFFEXOR XR [Concomitant]
     Active Substance: VENLAFAXINE HYDROCHLORIDE
  4. VIMPAT [Concomitant]
     Active Substance: LACOSAMIDE
  5. DOXEPIN [Concomitant]
     Active Substance: DOXEPIN
  6. XARELTO [Concomitant]
     Active Substance: RIVAROXABAN

REACTIONS (2)
  - Dizziness [None]
  - Fall [None]

NARRATIVE: CASE EVENT DATE: 20160925
